FAERS Safety Report 10619638 (Version 3)
Quarter: 2016Q2

REPORT INFORMATION
  Report Type: Spontaneous
  Country: FR (occurrence: FR)
  Receive Date: 20141202
  Receipt Date: 20160502
  Transmission Date: 20160815
  Serious: Yes (Life-Threatening, Hospitalization)
  Sender: FDA-Public Use
  Company Number: FR-ELI_LILLY_AND_COMPANY-FR201411008667

PATIENT
  Age: 40 Year
  Sex: Male

DRUGS (1)
  1. ZYPADHERA [Suspect]
     Active Substance: OLANZAPINE PAMOATE
     Indication: SCHIZOPHRENIA
     Dosage: 405 MG, EVERY 2 WEEKS
     Route: 030
     Dates: end: 20141119

REACTIONS (15)
  - Confusional state [Not Recovered/Not Resolved]
  - Somnolence [Unknown]
  - Dysarthria [Unknown]
  - Aggression [Recovered/Resolved]
  - Agitation [Not Recovered/Not Resolved]
  - Increased bronchial secretion [Recovered/Resolved]
  - Clonus [Unknown]
  - Sedation [Recovered/Resolved]
  - Coma [Recovered/Resolved]
  - Dyspnoea [Recovered/Resolved]
  - Salivary hypersecretion [Not Recovered/Not Resolved]
  - Seizure [Not Recovered/Not Resolved]
  - Syncope [Not Recovered/Not Resolved]
  - Pyrexia [Recovered/Resolved]
  - Overdose [Unknown]

NARRATIVE: CASE EVENT DATE: 20141119
